FAERS Safety Report 6482809-6 (Version None)
Quarter: 2009Q4

REPORT INFORMATION
  Report Type: 
  Country: None (occurrence: None)
  Receive Date: 20091209
  Receipt Date: 20091201
  Transmission Date: 20100525
  Serious: Yes (Hospitalization)
  Sender: FDA-Public Use
  Company Number: US-JNJFOC-20091201229

PATIENT
  Sex: Male
  Weight: 61.24 kg

DRUGS (9)
  1. DURAGESIC-100 [Suspect]
     Indication: BACK PAIN
     Route: 062
     Dates: start: 20020101, end: 20091101
  2. DURAGESIC-100 [Suspect]
     Dosage: NDC# 50458-094
     Route: 062
     Dates: start: 20091101
  3. DEMEROL [Concomitant]
     Indication: PAIN
     Route: 048
  4. PERCOCET [Concomitant]
     Indication: PAIN
     Route: 048
  5. VALIUM [Concomitant]
     Indication: ANXIETY
     Route: 048
  6. BACLOFEN [Concomitant]
     Indication: MUSCLE SPASMS
     Route: 048
  7. CYMBALTA [Concomitant]
     Indication: PAIN
     Route: 048
  8. PRILOSEC [Concomitant]
     Indication: GASTRIC DISORDER
     Route: 048
  9. FIORICET [Concomitant]
     Indication: HEADACHE
     Route: 048

REACTIONS (3)
  - DRUG INEFFECTIVE [None]
  - MULTIPLE SCLEROSIS [None]
  - PAIN [None]
